FAERS Safety Report 7443040-0 (Version None)
Quarter: 2011Q2

REPORT INFORMATION
  Report Type: 
  Country: None (occurrence: None)
  Receive Date: 20110428
  Receipt Date: 20110415
  Transmission Date: 20111010
  Serious: Yes (Other)
  Sender: FDA-Public Use
  Company Number: US-CELGENEUS-163-21880-11042174

PATIENT
  Sex: Male

DRUGS (8)
  1. REVLIMID [Suspect]
     Indication: MULTIPLE MYELOMA
     Dosage: 15 MILLIGRAM
     Route: 048
     Dates: start: 20090101
  2. OXYCODONE [Concomitant]
     Dosage: 40 MILLIGRAM
     Route: 065
  3. PRILOSEC [Concomitant]
     Dosage: 20 MILLIGRAM
     Route: 065
  4. SPIRONOLACTONE [Concomitant]
     Dosage: 100 MILLIGRAM
     Route: 065
  5. LASIX [Concomitant]
     Route: 065
  6. REVLIMID [Suspect]
     Dosage: 10 MILLIGRAM
     Route: 048
     Dates: start: 20110325
  7. LYRICA [Concomitant]
     Dosage: 50 MILLIGRAM
     Route: 065
  8. LEVAQUIN [Concomitant]
     Dosage: 500 MILLIGRAM
     Route: 065

REACTIONS (3)
  - RASH [None]
  - FLUID RETENTION [None]
  - PRURITUS [None]
